FAERS Safety Report 6170403-6 (Version None)
Quarter: 2009Q2

REPORT INFORMATION
  Report Type: 
  Country: None (occurrence: None)
  Receive Date: 20090427
  Receipt Date: 20090427
  Transmission Date: 20091009
  Serious: Yes (Life-Threatening, Hospitalization)
  Sender: FDA-Public Use
  Company Number: None

PATIENT
  Age: 17 Year
  Sex: Female
  Weight: 49 kg

DRUGS (3)
  1. CITALOPRAM HYDROBROMIDE [Suspect]
     Indication: OVERDOSE
     Dosage: PO
     Route: 048
     Dates: start: 20081215
  2. FLUOXETINE [Suspect]
     Indication: OVERDOSE
     Dosage: PO
     Route: 048
     Dates: start: 20081215
  3. CLONAZEPAM [Suspect]
     Indication: OVERDOSE
     Dosage: PO
     Route: 048
     Dates: start: 20081215

REACTIONS (8)
  - BLOOD CREATINE PHOSPHOKINASE INCREASED [None]
  - CONVULSION [None]
  - ELECTROCARDIOGRAM QRS COMPLEX PROLONGED [None]
  - ELECTROCARDIOGRAM QT PROLONGED [None]
  - HYPOXIA [None]
  - MENTAL STATUS CHANGES [None]
  - SUICIDE ATTEMPT [None]
  - TACHYCARDIA [None]
